FAERS Safety Report 18413390 (Version 3)
Quarter: 2020Q4

REPORT INFORMATION
  Report Type: Report from Study
  Country: FR (occurrence: FR)
  Receive Date: 20201021
  Receipt Date: 20201216
  Transmission Date: 20210114
  Serious: Yes (Hospitalization, Other)
  Sender: FDA-Public Use
  Company Number: FR-GILEAD-2020-0496071

PATIENT
  Sex: Male

DRUGS (8)
  1. SULFAMETHOXAZOLE;TRIMETHOPRIM [Concomitant]
     Active Substance: SULFAMETHOXAZOLE\TRIMETHOPRIM
     Indication: ANTIBIOTIC PROPHYLAXIS
     Route: 048
     Dates: start: 20180730
  2. TRIDESONIT [Concomitant]
     Active Substance: DESONIDE
     Indication: DERMATITIS EXFOLIATIVE GENERALISED
     Route: 061
     Dates: start: 20200604
  3. VALACICLOVIR [Concomitant]
     Active Substance: VALACYCLOVIR HYDROCHLORIDE
     Indication: PROPHYLAXIS
     Route: 048
     Dates: start: 20180730
  4. DIPROSONE G [Concomitant]
     Indication: DERMATITIS EXFOLIATIVE GENERALISED
     Route: 061
     Dates: start: 20200710
  5. DEXERYL [GLYCEROL;PARAFFIN, LIQUID;WHITE SOFT PARAFFIN] [Concomitant]
     Active Substance: GLYCERIN\MINERAL OIL\PETROLATUM
     Indication: DRY SKIN
     Route: 061
     Dates: start: 20190411
  6. IDELALISIB [Suspect]
     Active Substance: IDELALISIB
     Indication: B-CELL LYMPHOMA
     Dosage: 150 MG, BID
     Route: 048
     Dates: start: 20180730, end: 20200709
  7. FOLIC ACID. [Concomitant]
     Active Substance: FOLIC ACID
     Indication: FOLATE DEFICIENCY
     Route: 048
     Dates: start: 20180730
  8. DERMOVAL [BETAMETHASONE VALERATE] [Concomitant]
     Indication: DERMATITIS EXFOLIATIVE GENERALISED
     Route: 061
     Dates: start: 20200104

REACTIONS (2)
  - Disease progression [Not Recovered/Not Resolved]
  - Dermatitis exfoliative generalised [Recovered/Resolved]

NARRATIVE: CASE EVENT DATE: 20200806
